FAERS Safety Report 8512556-8 (Version None)
Quarter: 2012Q3

REPORT INFORMATION
  Report Type: 
  Country: None (occurrence: None)
  Receive Date: 20120716
  Receipt Date: 20120711
  Transmission Date: 20120928
  Serious: Yes (Other)
  Sender: FDA-Public Use
  Company Number: US-ROCHE-1066819

PATIENT
  Sex: Male
  Weight: 79.45 kg

DRUGS (3)
  1. ACCUTANE [Suspect]
     Dates: start: 19990510, end: 19990625
  2. ACCUTANE [Suspect]
     Route: 065
     Dates: start: 19990210, end: 19990410
  3. ACCUTANE [Suspect]
     Indication: ACNE
     Route: 065
     Dates: start: 19981117, end: 19981216

REACTIONS (5)
  - INFLAMMATORY BOWEL DISEASE [None]
  - COLITIS ULCERATIVE [None]
  - SMALL INTESTINAL OBSTRUCTION [None]
  - RECTAL ABSCESS [None]
  - EMOTIONAL DISTRESS [None]
